FAERS Safety Report 6407926-8 (Version None)
Quarter: 2009Q4

REPORT INFORMATION
  Report Type: 
  Country: None (occurrence: None)
  Receive Date: 20091020
  Receipt Date: 20091014
  Transmission Date: 20100525
  Serious: Yes (Other)
  Sender: FDA-Public Use
  Company Number: US-ABBOTT-09P-163-0602758-00

PATIENT
  Sex: Female
  Weight: 79.45 kg

DRUGS (2)
  1. HUMIRA [Suspect]
     Indication: RHEUMATOID ARTHRITIS
     Dates: start: 20070101, end: 20090901
  2. HUMIRA [Suspect]
     Route: 058
     Dates: start: 20091007

REACTIONS (3)
  - DEVICE DISLOCATION [None]
  - FALL [None]
  - WRIST FRACTURE [None]
